FAERS Safety Report 9632803 (Version 2)
Quarter: 2013Q4

REPORT INFORMATION
  Report Type: Spontaneous
  Country: JP (occurrence: JP)
  Receive Date: 20131018
  Receipt Date: 20131206
  Transmission Date: 20140711
  Serious: Yes (Other)
  Sender: FDA-Public Use
  Company Number: JP-VERTEX PHARMACEUTICALS INC-2013-010501

PATIENT
  Age: 53 Year
  Sex: Female

DRUGS (1)
  1. TELAVIC [Suspect]
     Dosage: UNK
     Route: 048
     Dates: start: 201206, end: 201208

REACTIONS (1)
  - Drug eruption [Unknown]
